FAERS Safety Report 4968220-5 (Version None)
Quarter: 2006Q2

REPORT INFORMATION
  Report Type: 
  Country: None (occurrence: None)
  Receive Date: 20060405
  Receipt Date: 20060324
  Transmission Date: 20061013
  Serious: Yes (Hospitalization, Other)
  Sender: FDA-Public Use
  Company Number: 2006025488

PATIENT
  Age: 40 Year
  Sex: Female
  Weight: 61 kg

DRUGS (2)
  1. ZITHROMAX [Suspect]
     Indication: RESPIRATORY TRACT INFECTION
     Dosage: 500 MG (500 MG, DAILY), ORAL
     Route: 048
     Dates: start: 20060120, end: 20060121
  2. EPHEDRINE AND CODEINE MIXTURE (CODEINE PHOSPHATE, EPHEDRINE HYDROCHLOR [Concomitant]

REACTIONS (4)
  - DYSPNOEA [None]
  - GENERALISED OEDEMA [None]
  - RASH GENERALISED [None]
  - SUFFOCATION FEELING [None]
